FAERS Safety Report 25011776 (Version 5)
Quarter: 2025Q2

REPORT INFORMATION
  Report Type: Spontaneous
  Country: US (occurrence: US)
  Receive Date: 20250226
  Receipt Date: 20250401
  Transmission Date: 20250717
  Serious: Yes (Death, Hospitalization)
  Sender: ABBVIE
  Company Number: US-ABBVIE-6150075

PATIENT
  Age: 78 Year
  Sex: Female
  Weight: 120 kg

DRUGS (7)
  1. ELAHERE [Suspect]
     Active Substance: MIRVETUXIMAB SORAVTANSINE-GYNX
     Indication: Ovarian cancer
     Dosage: FORM STRENGTH-5 MG/ML,  FIRST DOSE
     Route: 042
     Dates: start: 20250114, end: 20250114
  2. ELAHERE [Suspect]
     Active Substance: MIRVETUXIMAB SORAVTANSINE-GYNX
     Indication: Ovarian cancer
     Dosage: DOSAGE: 5 MG/ML FORM STRENGTH-5 MG/ML,  SECOND DOSE
     Route: 042
     Dates: start: 20250204, end: 20250204
  3. CARBOPLATIN [Suspect]
     Active Substance: CARBOPLATIN
     Indication: Product used for unknown indication
     Route: 065
  4. METOPROLOL [Concomitant]
     Active Substance: METOPROLOL
     Indication: Product used for unknown indication
     Dates: start: 2022
  5. XARELTO [Concomitant]
     Active Substance: RIVAROXABAN
     Indication: Product used for unknown indication
     Dates: start: 2020
  6. AMIODARONE [Concomitant]
     Active Substance: AMIODARONE
     Indication: Product used for unknown indication
     Dates: start: 2022
  7. PROTONIX [Concomitant]
     Active Substance: PANTOPRAZOLE SODIUM
     Indication: Product used for unknown indication
     Dates: start: 2020

REACTIONS (10)
  - Traumatic lung injury [Fatal]
  - Pneumonitis [Fatal]
  - Dyspnoea [Unknown]
  - Drug resistance [Unknown]
  - Gait inability [Unknown]
  - Lung opacity [Unknown]
  - Eye disorder [Unknown]
  - Carbohydrate antigen 125 increased [Unknown]
  - Product quality issue [Unknown]
  - Bedridden [Unknown]

NARRATIVE: CASE EVENT DATE: 20250101
